FAERS Safety Report 6994366-6 (Version None)
Quarter: 2010Q3

REPORT INFORMATION
  Report Type: 
  Country: None (occurrence: None)
  Receive Date: 20100917
  Receipt Date: 20100908
  Transmission Date: 20110219
  Serious: Yes (Other)
  Sender: FDA-Public Use
  Company Number: US-AMGEN-KDL431002

PATIENT
  Sex: Male

DRUGS (4)
  1. PROCRIT [Suspect]
     Indication: RENAL FAILURE CHRONIC
     Route: 058
     Dates: start: 20090501, end: 20100301
  2. PROCRIT [Suspect]
     Route: 058
     Dates: start: 20090901, end: 20091201
  3. UNSPECIFIED MEDICATION [Concomitant]
  4. ALLOPURINOL [Concomitant]
     Dates: start: 20091105

REACTIONS (2)
  - APLASIA PURE RED CELL [None]
  - HYPERPARATHYROIDISM [None]
